FAERS Safety Report 14097380 (Version 1)
Quarter: 2017Q4

REPORT INFORMATION
  Report Type: Spontaneous
  Country: US (occurrence: US)
  Receive Date: 20171016
  Receipt Date: 20171016
  Transmission Date: 20180321
  Serious: Yes (Life-Threatening, Hospitalization, Other)
  Sender: FDA-Public Use
  Company Number: None

PATIENT
  Age: 49 Year
  Sex: Male
  Weight: 80.1 kg

DRUGS (2)
  1. CVS FACE WASH (BENZOYL PEROXIDE) [Suspect]
     Active Substance: BENZOYL PEROXIDE
     Indication: THERAPEUTIC SKIN CARE TOPICAL
     Route: 061
     Dates: start: 20170925, end: 20170929
  2. CVS FACE WASH (COSMETICS) [Suspect]
     Active Substance: COSMETICS

REACTIONS (7)
  - Lymphadenopathy [None]
  - Hyperhidrosis [None]
  - Pain in extremity [None]
  - Muscle spasms [None]
  - Toxicity to various agents [None]
  - Pyrexia [None]
  - Gait inability [None]

NARRATIVE: CASE EVENT DATE: 20171001
